FAERS Safety Report 16568300 (Version 9)
Quarter: 2021Q1

REPORT INFORMATION
  Report Type: Report from Study
  Country: AR (occurrence: AR)
  Receive Date: 20190712
  Receipt Date: 20210114
  Transmission Date: 20210419
  Serious: Yes (Death, Hospitalization, Other)
  Sender: FDA-Public Use
  Company Number: PHHY2019AR158485

PATIENT
  Age: 54 Year
  Sex: Female

DRUGS (11)
  1. TAFINLAR [Suspect]
     Active Substance: DABRAFENIB MESYLATE
     Dosage: 300 MG, QD
     Route: 048
     Dates: start: 20190425, end: 20190626
  2. TAFINLAR [Suspect]
     Active Substance: DABRAFENIB MESYLATE
     Dosage: 300 MG, QD
     Route: 048
     Dates: start: 20190727
  3. MEKINIST [Suspect]
     Active Substance: TRAMETINIB DIMETHYL SULFOXIDE
     Dosage: 2 MG,QD
     Route: 048
  4. TAFINLAR [Suspect]
     Active Substance: DABRAFENIB MESYLATE
     Dosage: 150 MG, Q12H
     Route: 048
     Dates: start: 20190425
  5. MEKINIST [Suspect]
     Active Substance: TRAMETINIB DIMETHYL SULFOXIDE
     Dosage: 2 MG,QD
     Route: 048
     Dates: start: 20200425, end: 202005
  6. TAFINLAR [Suspect]
     Active Substance: DABRAFENIB MESYLATE
     Dosage: 300 MG, BID
     Route: 048
     Dates: start: 20190425, end: 202005
  7. MEKINIST [Suspect]
     Active Substance: TRAMETINIB DIMETHYL SULFOXIDE
     Indication: METASTATIC MALIGNANT MELANOMA
     Dosage: 2 MG, QD
     Route: 048
     Dates: start: 20190425, end: 20190626
  8. TAFINLAR [Suspect]
     Active Substance: DABRAFENIB MESYLATE
     Dosage: 1 UNK, QD
     Route: 048
  9. TAFINLAR [Suspect]
     Active Substance: DABRAFENIB MESYLATE
     Dosage: 300 MG,QD
     Route: 048
  10. TAFINLAR [Suspect]
     Active Substance: DABRAFENIB MESYLATE
     Indication: METASTATIC MALIGNANT MELANOMA
     Dosage: 225 MG, BID
     Route: 048
     Dates: start: 20190425
  11. MEKINIST [Suspect]
     Active Substance: TRAMETINIB DIMETHYL SULFOXIDE
     Dosage: 2 MG, QD
     Route: 048
     Dates: start: 20190727

REACTIONS (14)
  - Death [Fatal]
  - Gastrointestinal disorder [Unknown]
  - Brain oedema [Recovering/Resolving]
  - Pyrexia [Not Recovered/Not Resolved]
  - Incorrect dose administered [Unknown]
  - Cerebral ischaemia [Recovering/Resolving]
  - Dehydration [Recovering/Resolving]
  - Dry skin [Unknown]
  - Product prescribing error [Unknown]
  - Seizure [Unknown]
  - Pneumoperitoneum [Recovered/Resolved]
  - Memory impairment [Unknown]
  - Metastases to central nervous system [Unknown]
  - Candida infection [Unknown]

NARRATIVE: CASE EVENT DATE: 20190621
